FAERS Safety Report 22341860 (Version 6)
Quarter: 2023Q4

REPORT INFORMATION
  Report Type: Spontaneous
  Country: JP (occurrence: None)
  Receive Date: 20230518
  Receipt Date: 20231023
  Transmission Date: 20240110
  Serious: Yes (Life-Threatening, Hospitalization, Other)
  Sender: FDA-Public Use
  Company Number: 2023A113071

PATIENT
  Age: 66 Year
  Sex: Female
  Weight: 68 kg

DRUGS (29)
  1. IMFINZI [Suspect]
     Active Substance: DURVALUMAB
     Indication: Bile duct cancer
     Route: 041
     Dates: start: 20230420, end: 20230420
  2. IMFINZI [Suspect]
     Active Substance: DURVALUMAB
     Indication: Bile duct cancer
     Route: 041
     Dates: start: 20230518, end: 20230518
  3. IMFINZI [Suspect]
     Active Substance: DURVALUMAB
     Indication: Bile duct cancer
     Route: 041
     Dates: start: 20230615, end: 20230713
  4. GEMCITABINE HYDROCHLORIDE [Suspect]
     Active Substance: GEMCITABINE HYDROCHLORIDE
     Indication: Bile duct cancer
     Dates: start: 20230112, end: 20230330
  5. GEMCITABINE HYDROCHLORIDE [Suspect]
     Active Substance: GEMCITABINE HYDROCHLORIDE
     Indication: Bile duct cancer
     Dates: start: 20230112, end: 20230330
  6. GEMCITABINE HYDROCHLORIDE [Suspect]
     Active Substance: GEMCITABINE HYDROCHLORIDE
     Indication: Bile duct cancer
     Dates: start: 20230420, end: 20230427
  7. GEMCITABINE HYDROCHLORIDE [Suspect]
     Active Substance: GEMCITABINE HYDROCHLORIDE
     Indication: Bile duct cancer
     Dates: start: 20230420, end: 20230427
  8. GEMCITABINE HYDROCHLORIDE [Suspect]
     Active Substance: GEMCITABINE HYDROCHLORIDE
     Indication: Bile duct cancer
     Dosage: DOSE REDUCTION BY 20%
     Dates: start: 20230518, end: 20230713
  9. GEMCITABINE HYDROCHLORIDE [Suspect]
     Active Substance: GEMCITABINE HYDROCHLORIDE
     Indication: Bile duct cancer
     Dosage: DOSE REDUCTION BY 20%
     Dates: start: 20230518, end: 20230713
  10. CISPLATIN [Suspect]
     Active Substance: CISPLATIN
     Indication: Bile duct cancer
     Dosage: DOSE UNKNOWN
     Dates: start: 20230112, end: 20230330
  11. CISPLATIN [Suspect]
     Active Substance: CISPLATIN
     Indication: Bile duct cancer
     Dosage: DOSE UNKNOWN
     Dates: start: 20230112, end: 20230330
  12. CISPLATIN [Suspect]
     Active Substance: CISPLATIN
     Indication: Bile duct cancer
     Dosage: DOSE UNKNOWN
     Dates: start: 20230420, end: 20230427
  13. CISPLATIN [Suspect]
     Active Substance: CISPLATIN
     Indication: Bile duct cancer
     Dosage: DOSE UNKNOWN
     Dates: start: 20230420, end: 20230427
  14. CISPLATIN [Suspect]
     Active Substance: CISPLATIN
     Indication: Bile duct cancer
     Dosage: DOSE REDUCTION BY 20%
     Dates: start: 20230518, end: 20230713
  15. CISPLATIN [Suspect]
     Active Substance: CISPLATIN
     Indication: Bile duct cancer
     Dosage: DOSE REDUCTION BY 20%
     Dates: start: 20230518, end: 20230713
  16. CLOPIDOGREL [Concomitant]
     Active Substance: CLOPIDOGREL BISULFATE
     Indication: Cerebral infarction
     Dosage: AFTER BREAKFAST
     Route: 048
     Dates: start: 20220118
  17. PANCRELIPASE [Concomitant]
     Active Substance: PANCRELIPASE
     Dosage: AFTER BREAKFAST, LUNCH AND EVENING MEAL
     Route: 048
     Dates: start: 20210907
  18. MAGNESIUM OXIDE [Concomitant]
     Active Substance: MAGNESIUM OXIDE
     Dosage: AFTER BREAKFAST, LUNCH AND EVENING MEAL, NUMBER OF DOSES: ADJUSTABLE
     Route: 048
     Dates: start: 20211028
  19. FAMOTIDINE [Concomitant]
     Active Substance: FAMOTIDINE
     Dosage: AFTER BREAKFAST AND EVENING MEAL, STARTED BEFORE INITIAL VISIT
     Route: 048
  20. MIYA-BM [Concomitant]
     Active Substance: CLOSTRIDIUM BUTYRICUM SPORES STRAIN M-55
     Dosage: AFTER BREAKFAST, LUNCH AND EVENING MEAL
     Route: 048
     Dates: start: 20210912
  21. LACTULOSE [Concomitant]
     Active Substance: LACTULOSE
     Dosage: AFTER BREAKFAST, LUNCH AND EVENING MEAL,
     Route: 048
     Dates: start: 20210912
  22. TOLVAPTAN OD [Concomitant]
     Dosage: AFTER BREAKFAST
     Route: 048
     Dates: start: 20210912
  23. MOSAPRIDE CITRATE DIHYDRATE [Concomitant]
     Active Substance: MOSAPRIDE CITRATE DIHYDRATE
     Dosage: AFTER BREAKFAST, LUNCH AND EVENING MEAL
     Route: 048
     Dates: start: 20220613
  24. SODIUM PICOSULFATE [Concomitant]
     Active Substance: SODIUM PICOSULFATE
     Indication: Constipation
     Dosage: AS REQUIRED FOR CONSTIPATION, 10-15 DROPS/DOSE, ARBITRARILY ADJUSTABLE
     Route: 048
     Dates: start: 20230209
  25. HEPARINOID [Concomitant]
     Dosage: DRY SITES, DOSE UNKNOWN
     Route: 062
     Dates: start: 20230302
  26. FUROSEMIDE [Concomitant]
     Active Substance: FUROSEMIDE
     Dosage: AFTER BREAKFAST
     Route: 048
     Dates: start: 20220502
  27. DECADRON [Concomitant]
     Active Substance: DEXAMETHASONE
     Dosage: AFTER BREAKFAST AND LUNCH
     Route: 048
     Dates: start: 20230420
  28. ACETAMINOPHEN [Concomitant]
     Active Substance: ACETAMINOPHEN
     Dosage: AFTER BREAKFAST, LUNCH, EVENING MEAL AND BEFORE BEDTIME
     Route: 048
     Dates: start: 20230607
  29. METOCLOPRAMIDE [Concomitant]
     Active Substance: METOCLOPRAMIDE
     Indication: Nausea
     Dosage: AFTER BREAKFAST, LUNCH, EVENING MEAL, AS REQUIRED FOR QUEASY FEELING, ARBITRARILY ADJUSTABLE
     Route: 048

REACTIONS (4)
  - Neutropenia [Unknown]
  - Platelet count decreased [Recovering/Resolving]
  - Anaemia [Recovering/Resolving]
  - White blood cell count decreased [Recovering/Resolving]

NARRATIVE: CASE EVENT DATE: 20230511
